FAERS Safety Report 4536416-2 (Version None)
Quarter: 2004Q4

REPORT INFORMATION
  Report Type: 
  Country: None (occurrence: None)
  Receive Date: 20041223
  Receipt Date: 20040929
  Transmission Date: 20050328
  Serious: No
  Sender: FDA-Public Use
  Company Number: US-GLAXOSMITHKLINE-A0527774A

PATIENT
  Age: 62 Year
  Sex: Female

DRUGS (11)
  1. FLONASE [Suspect]
     Dosage: 1SPR PER DAY
     Route: 045
  2. ALLEGRA [Concomitant]
  3. ZYRTEC [Concomitant]
  4. GUAIFENESIN [Concomitant]
  5. SYNTHROID [Concomitant]
  6. SINGULAIR [Concomitant]
  7. CELEBREX [Concomitant]
  8. PROZAC [Concomitant]
  9. MULTI-VITAMINS [Concomitant]
  10. CALCIUM [Concomitant]
  11. CLONAZEPAM [Concomitant]

REACTIONS (3)
  - NASAL DISCOMFORT [None]
  - ORAL PRURITUS [None]
  - PHARMACEUTICAL PRODUCT COMPLAINT [None]
